FAERS Safety Report 22962820 (Version 4)
Quarter: 2023Q4

REPORT INFORMATION
  Report Type: Report from Study
  Country: KR (occurrence: KR)
  Receive Date: 20230920
  Receipt Date: 20231117
  Transmission Date: 20240110
  Serious: Yes (Hospitalization)
  Sender: FDA-Public Use
  Company Number: KR-JNJFOC-20230926855

PATIENT
  Age: 67 Year
  Sex: Male
  Weight: 72 kg

DRUGS (54)
  1. TALQUETAMAB [Suspect]
     Active Substance: TALQUETAMAB
     Indication: Plasma cell myeloma
     Dosage: MOST RECENT DOSE OF TALQUETAMAB WAS ON 24-OCT-2023 (PRIOR TO SECOND EPISODE OF DIZZINESS)
     Route: 058
     Dates: start: 20230818, end: 20230904
  2. TALQUETAMAB [Suspect]
     Active Substance: TALQUETAMAB
     Route: 058
     Dates: start: 20231010, end: 20231010
  3. DARATUMUMAB [Suspect]
     Active Substance: DARATUMUMAB
     Indication: Plasma cell myeloma
     Dosage: MOST RECENT DOSE OF DARATUMUMAB WAS ON 31-OCT-2023 (PRIOR TO SECOND EPISODE OF DIZZINESS)
     Route: 058
     Dates: start: 20230817, end: 20230904
  4. DEXAMETHASONE [Suspect]
     Active Substance: DEXAMETHASONE
     Indication: Plasma cell myeloma
     Route: 048
     Dates: start: 20231010, end: 20231031
  5. POMALIDOMIDE [Suspect]
     Active Substance: POMALIDOMIDE
     Indication: Plasma cell myeloma
     Route: 048
     Dates: start: 20231010, end: 20231030
  6. VICAFEROL [Concomitant]
     Indication: Osteoporosis prophylaxis
     Route: 048
     Dates: start: 20210604
  7. LEVOFLOXACIN [Concomitant]
     Active Substance: LEVOFLOXACIN
     Indication: Infection prophylaxis
     Route: 048
     Dates: start: 20230817
  8. SULFAMETHOXAZOLE\TRIMETHOPRIM [Concomitant]
     Active Substance: SULFAMETHOXAZOLE\TRIMETHOPRIM
     Indication: Infection prophylaxis
     Route: 048
     Dates: start: 20230817
  9. VACRAX [ACICLOVIR] [Concomitant]
     Indication: Infection prophylaxis
     Route: 048
     Dates: start: 20230817
  10. DIABEX [Concomitant]
     Active Substance: METFORMIN HYDROCHLORIDE
     Indication: Diabetes mellitus
     Route: 048
     Dates: start: 20230818
  11. CEFTRIAXONE [Concomitant]
     Active Substance: CEFTRIAXONE\CEFTRIAXONE SODIUM
     Indication: Infection prophylaxis
     Route: 042
     Dates: start: 20230820, end: 20230905
  12. EVOGLIPTIN;METFORMIN [Concomitant]
     Indication: Diabetes mellitus
     Route: 048
     Dates: start: 20230819
  13. PIOGLITAZONE [Concomitant]
     Active Substance: PIOGLITAZONE
     Indication: Diabetes mellitus
     Route: 048
     Dates: start: 20230819
  14. PITAVASTATIN [Concomitant]
     Active Substance: PITAVASTATIN
     Indication: Hyperlipidaemia
     Route: 048
     Dates: start: 20230819
  15. SODIUM CHLORIDE [Concomitant]
     Active Substance: SODIUM CHLORIDE
     Indication: Therapeutic gargle
     Route: 048
     Dates: start: 20230819, end: 20230905
  16. SODIUM CHLORIDE [Concomitant]
     Active Substance: SODIUM CHLORIDE
     Route: 048
     Dates: start: 20230913, end: 20230914
  17. TAMIPOOL [VITAMINS NOS] [Concomitant]
     Indication: Nutritional supplementation
     Route: 042
     Dates: start: 20230819, end: 20230905
  18. TAMIPOOL [VITAMINS NOS] [Concomitant]
     Route: 042
     Dates: start: 20230913, end: 20230914
  19. DESONIDE [Concomitant]
     Active Substance: DESONIDE
     Indication: Rash
     Route: 061
     Dates: start: 20230822, end: 20230905
  20. POTASSIUM CHLORIDE [Concomitant]
     Active Substance: POTASSIUM CHLORIDE
     Indication: Electrolyte substitution therapy
     Route: 042
     Dates: start: 20230823
  21. HUMULIN R [Concomitant]
     Active Substance: INSULIN HUMAN
     Indication: Diabetes mellitus
     Route: 042
     Dates: start: 20230824, end: 20230905
  22. HUMULIN R [Concomitant]
     Active Substance: INSULIN HUMAN
     Route: 042
     Dates: start: 20230913, end: 20230914
  23. PREDNISOLONE [Concomitant]
     Active Substance: PREDNISOLONE
     Indication: Infection prophylaxis
     Route: 048
     Dates: start: 20230824, end: 20230903
  24. PREDNISOLONE [Concomitant]
     Active Substance: PREDNISOLONE
     Route: 048
     Dates: start: 20230914, end: 20230926
  25. TEGOPRAZAN [Concomitant]
     Active Substance: TEGOPRAZAN
     Indication: Gastrooesophageal reflux disease
     Route: 048
     Dates: start: 20230824
  26. AMINO ACIDS\DEXTROSE\ELECTROLYTES NOS\SOYBEAN OIL [Concomitant]
     Active Substance: AMINO ACIDS\DEXTROSE\ELECTROLYTES NOS\SOYBEAN OIL
     Indication: Nutritional supplementation
     Route: 042
     Dates: start: 20230824
  27. AMINO ACIDS\DEXTROSE\ELECTROLYTES NOS\SOYBEAN OIL [Concomitant]
     Active Substance: AMINO ACIDS\DEXTROSE\ELECTROLYTES NOS\SOYBEAN OIL
     Route: 042
     Dates: start: 20230912, end: 20230913
  28. AMINO ACIDS\DEXTROSE\ELECTROLYTES NOS\SOYBEAN OIL [Concomitant]
     Active Substance: AMINO ACIDS\DEXTROSE\ELECTROLYTES NOS\SOYBEAN OIL
     Route: 042
     Dates: start: 20230914, end: 20230914
  29. TRIMEBUTINE [Concomitant]
     Active Substance: TRIMEBUTINE
     Indication: Diarrhoea
     Route: 048
     Dates: start: 20230824
  30. MONTMORILLONITE [Concomitant]
     Active Substance: MONTMORILLONITE
     Indication: Diarrhoea
     Route: 048
     Dates: start: 20230904, end: 20230912
  31. MONTMORILLONITE [Concomitant]
     Active Substance: MONTMORILLONITE
     Route: 048
     Dates: start: 20230827, end: 20230901
  32. MONTMORILLONITE [Concomitant]
     Active Substance: MONTMORILLONITE
     Route: 048
     Dates: start: 20230902, end: 20230902
  33. LOPERAMIDE [Concomitant]
     Active Substance: LOPERAMIDE
     Indication: Diarrhoea
     Route: 048
     Dates: start: 20230904, end: 20230912
  34. LOPERAMIDE [Concomitant]
     Active Substance: LOPERAMIDE
     Route: 048
     Dates: start: 20230913, end: 202310
  35. ORNITHINE OXOGLURATE [Concomitant]
     Active Substance: ORNITHINE OXOGLURATE
     Indication: Alanine aminotransferase increased
     Route: 042
     Dates: start: 20230829, end: 20230901
  36. ORNITHINE OXOGLURATE [Concomitant]
     Active Substance: ORNITHINE OXOGLURATE
     Indication: Prophylaxis
     Route: 042
     Dates: start: 20230902, end: 20230905
  37. ORNITHINE OXOGLURATE [Concomitant]
     Active Substance: ORNITHINE OXOGLURATE
     Indication: Prophylaxis
     Route: 042
     Dates: start: 20230914, end: 20230914
  38. URSODIOL [Concomitant]
     Active Substance: URSODIOL
     Indication: Alanine aminotransferase increased
     Route: 048
     Dates: start: 20230829
  39. URSODIOL [Concomitant]
     Active Substance: URSODIOL
     Indication: Antiviral prophylaxis
     Route: 048
     Dates: start: 20230902
  40. BENZYDAMINE [Concomitant]
     Active Substance: BENZYDAMINE
     Indication: Oral dysaesthesia
     Route: 048
     Dates: start: 20230831, end: 20230903
  41. LEVOCETIRIZINE [Concomitant]
     Active Substance: LEVOCETIRIZINE
     Indication: Pruritus
     Route: 048
     Dates: start: 20230906
  42. LEVOCETIRIZINE [Concomitant]
     Active Substance: LEVOCETIRIZINE
     Indication: Rash
     Route: 048
     Dates: start: 20230831, end: 20230903
  43. FEXOFENADINE [Concomitant]
     Active Substance: FEXOFENADINE HYDROCHLORIDE
     Indication: Pruritus
     Route: 048
     Dates: start: 20230901, end: 20230914
  44. LOPERAMIDE [Concomitant]
     Active Substance: LOPERAMIDE
     Indication: Diarrhoea
     Route: 048
     Dates: start: 20230903
  45. LOPERAMIDE [Concomitant]
     Active Substance: LOPERAMIDE
     Route: 048
     Dates: start: 20230829, end: 20230902
  46. ACETAMINOPHEN [Concomitant]
     Active Substance: ACETAMINOPHEN
     Indication: Antipyresis
     Route: 048
     Dates: start: 20230906, end: 20230912
  47. ACETAMINOPHEN [Concomitant]
     Active Substance: ACETAMINOPHEN
     Dosage: ONCE
     Route: 048
     Dates: start: 20230901, end: 20230901
  48. TRAMADOL [Concomitant]
     Active Substance: TRAMADOL\TRAMADOL HYDROCHLORIDE
     Indication: Pain prophylaxis
     Route: 048
     Dates: start: 20230906, end: 20230912
  49. ONDANSETRON [Concomitant]
     Active Substance: ONDANSETRON
     Indication: Nausea
     Route: 042
     Dates: start: 20230912, end: 20230912
  50. CALCIUM CHLORIDE [Concomitant]
     Active Substance: CALCIUM CHLORIDE
     Indication: Electrolyte substitution therapy
     Route: 042
     Dates: start: 20230829
  51. CHLORPHENIRAMINE [Concomitant]
     Active Substance: CHLORPHENIRAMINE
     Indication: Pruritus
     Route: 042
     Dates: start: 20230830
  52. CHLORPHENIRAMINE [Concomitant]
     Active Substance: CHLORPHENIRAMINE
     Dosage: FREQUENCY: ONCE
     Route: 042
     Dates: start: 20230903, end: 20230903
  53. HYDROXYZINE [Concomitant]
     Active Substance: HYDROXYZINE HYDROCHLORIDE
     Indication: Pruritus
     Route: 048
     Dates: start: 20230831
  54. HYDROXYZINE [Concomitant]
     Active Substance: HYDROXYZINE HYDROCHLORIDE
     Indication: Rash
     Route: 048
     Dates: start: 20230915

REACTIONS (1)
  - Dizziness [Recovered/Resolved]

NARRATIVE: CASE EVENT DATE: 20230912
